FAERS Safety Report 10029781 (Version 1)
Quarter: 2014Q1

REPORT INFORMATION
  Report Type: Spontaneous
  Country: US (occurrence: None)
  Receive Date: 20140319
  Receipt Date: 20140319
  Transmission Date: 20141002
  Serious: Yes (Life-Threatening, Other)
  Sender: FDA-Public Use
  Company Number: 001684610A

PATIENT
  Age: 35 Year
  Sex: Male

DRUGS (2)
  1. PROACTIV RENEWING CLEANSER [Suspect]
     Indication: ACNE
     Dosage: DERMAL
     Dates: start: 20131204, end: 20140217
  2. PROACTIVE REPAIRING TREATMENT [Suspect]
     Indication: ACNE
     Dosage: DERMAL
     Dates: start: 20131204, end: 20140217

REACTIONS (6)
  - Swelling face [None]
  - Pharyngeal oedema [None]
  - Swollen tongue [None]
  - Eye swelling [None]
  - Urticaria [None]
  - Lip swelling [None]
